FAERS Safety Report 5002315-5 (Version None)
Quarter: 2006Q2

REPORT INFORMATION
  Report Type: 
  Country: None (occurrence: None)
  Receive Date: 20060512
  Receipt Date: 20060427
  Transmission Date: 20061013
  Serious: Yes (Life-Threatening)
  Sender: FDA-Public Use
  Company Number: GB200604004600

PATIENT
  Age: 61 Year
  Sex: Female

DRUGS (2)
  1. YENTREVE(DULOXETINE HYDROCHLORIDE UNKNOWN FORMULATION) UNKNOWN [Suspect]
     Indication: INCONTINENCE
     Dosage: 20 MG, ORAL
     Route: 048
     Dates: start: 20060309, end: 20060311
  2. KAPAKE (CODEINE PHOSPHATE, PARACETAMOL) [Concomitant]

REACTIONS (2)
  - DRUG WITHDRAWAL SYNDROME [None]
  - SUICIDAL IDEATION [None]
